FAERS Safety Report 10899915 (Version 4)
Quarter: 2015Q2

REPORT INFORMATION
  Report Type: Report from Study
  Country: NZ (occurrence: NZ)
  Receive Date: 20150310
  Receipt Date: 20150506
  Transmission Date: 20150821
  Serious: Yes (Hospitalization, Other)
  Sender: FDA-Public Use
  Company Number: NZ-GLAXOSMITHKLINE-NZ2015029859

PATIENT
  Age: 59 Year
  Sex: Female
  Weight: 114 kg

DRUGS (5)
  1. FLUTICASONE FUROATE + VILANTEROL TRIFENATATE [Suspect]
     Active Substance: FLUTICASONE FUROATE\VILANTEROL TRIFENATATE
     Indication: CHRONIC OBSTRUCTIVE PULMONARY DISEASE
     Dosage: 1 PUFF(S), QD
     Route: 055
     Dates: start: 20141210
  2. NICOTINE LOZENGES [Concomitant]
     Active Substance: NICOTINE
     Indication: EX-TOBACCO USER
     Dosage: 4 MG, SINGLE
     Route: 048
     Dates: start: 20150304, end: 20150304
  3. CLOTRIMAZOLE CREAM [Concomitant]
     Indication: FUNGAL INFECTION
     Dosage: 1 %, BID
     Route: 061
     Dates: start: 20150305
  4. SPAN K [Concomitant]
     Indication: HYPOKALAEMIA
     Dosage: 1200 MG, BID
     Route: 048
     Dates: start: 20150304, end: 20150305
  5. AUGMENTIN [Concomitant]
     Active Substance: AMOXICILLIN\CLAVULANATE POTASSIUM
     Indication: PNEUMONIA
     Dosage: 625 MG, TID
     Route: 048
     Dates: start: 20150305

REACTIONS (1)
  - Pneumonia pneumococcal [Recovered/Resolved with Sequelae]

NARRATIVE: CASE EVENT DATE: 20150303
